FAERS Safety Report 22263315 (Version 1)
Quarter: 2023Q2

REPORT INFORMATION
  Report Type: Spontaneous
  Country: CO (occurrence: CO)
  Receive Date: 20230428
  Receipt Date: 20230428
  Transmission Date: 20230722
  Serious: Yes (Death)
  Sender: FDA-Public Use
  Company Number: CO-TAKEDA-2023TUS042531

PATIENT
  Age: 25 Year
  Sex: Female
  Weight: 43 kg

DRUGS (4)
  1. PONATINIB [Suspect]
     Active Substance: PONATINIB
     Indication: Acute myeloid leukaemia
     Dosage: 45 MILLIGRAM, QD
     Route: 048
     Dates: start: 20220630, end: 20230425
  2. ACETAMINOPHEN [Concomitant]
     Active Substance: ACETAMINOPHEN
     Dosage: 1000 MILLIGRAM, Q8HR
     Route: 065
     Dates: start: 20220530
  3. DOLEX FORTE [Concomitant]
     Active Substance: ACETAMINOPHEN\ASPIRIN\CAFFEINE
     Dosage: UNK UNK, Q6HR
     Route: 065
     Dates: start: 20220530
  4. HYDROMORPHONE [Concomitant]
     Active Substance: HYDROMORPHONE
     Dosage: 2.5 MILLIGRAM, Q12H
     Route: 065
     Dates: start: 20220530

REACTIONS (1)
  - Illness [Fatal]

NARRATIVE: CASE EVENT DATE: 20230425
